FAERS Safety Report 23432167 (Version 1)
Quarter: 2024Q1

REPORT INFORMATION
  Report Type: Spontaneous
  Country: US (occurrence: None)
  Receive Date: 20240122
  Receipt Date: 20240122
  Transmission Date: 20240410
  Serious: Yes (Other)
  Sender: FDA-Public Use
  Company Number: None

PATIENT
  Age: 14 Year
  Sex: Female
  Weight: 49.5 kg

DRUGS (1)
  1. SENNOSIDES [Suspect]
     Active Substance: SENNOSIDES
     Indication: Constipation
     Dosage: OTHER QUANTITY : 2 CAPSULE(S);?FREQUENCY : TWICE A DAY;?
     Route: 048
     Dates: start: 20231221, end: 20240122

REACTIONS (6)
  - Nausea [None]
  - Abdominal pain [None]
  - Vomiting [None]
  - Diarrhoea [None]
  - Anal incontinence [None]
  - Viral infection [None]

NARRATIVE: CASE EVENT DATE: 20240122
